FAERS Safety Report 4541957-8 (Version None)
Quarter: 2004Q4

REPORT INFORMATION
  Report Type: 
  Country: None (occurrence: None)
  Receive Date: 20041227
  Receipt Date: 20041216
  Transmission Date: 20050328
  Serious: Yes (Hospitalization)
  Sender: FDA-Public Use
  Company Number: 211005

PATIENT
  Age: 34 Year
  Sex: Male
  Weight: 80.7 kg

DRUGS (14)
  1. AVASTIN [Suspect]
     Indication: COLORECTAL CANCER METASTATIC
     Dosage: 10 MG/KG, Q2W, INTRAVENOUS
     Route: 042
     Dates: start: 20041011
  2. FLUOROURACIL [Concomitant]
  3. LEUCOVORIN CALCIUM [Concomitant]
  4. OXALIPLATIN (OXALIPLATIN) [Concomitant]
  5. SPIRONOLACTONE [Concomitant]
  6. METRONIDAZOLE [Concomitant]
  7. CIPRO [Concomitant]
  8. OXYCONTIN [Concomitant]
  9. ACTIQ [Concomitant]
  10. LIDODERM (LIDOCAINE) [Concomitant]
  11. KYTRIL [Concomitant]
  12. DECADRON [Concomitant]
  13. CALCIUM GLUCONATE [Concomitant]
  14. MAGNESIUM SULFATE [Concomitant]

REACTIONS (10)
  - BLOOD PRESSURE SYSTOLIC INCREASED [None]
  - CLOSTRIDIUM COLITIS [None]
  - CULTURE POSITIVE [None]
  - DEHYDRATION [None]
  - ELECTROLYTE IMBALANCE [None]
  - ESCHERICHIA INFECTION [None]
  - PATHOGEN RESISTANCE [None]
  - SEPSIS [None]
  - SMALL INTESTINAL OBSTRUCTION [None]
  - STAPHYLOCOCCAL INFECTION [None]
